FAERS Safety Report 21898511 (Version 1)
Quarter: 2023Q1

REPORT INFORMATION
  Report Type: Spontaneous
  Country: US (occurrence: None)
  Receive Date: 20230121
  Receipt Date: 20230121
  Transmission Date: 20230417
  Serious: Yes (unspecified)
  Sender: FDA-Public Use
  Company Number: None

PATIENT
  Age: 66 Year
  Sex: Female
  Weight: 79.2 kg

DRUGS (11)
  1. ACETAMINOPHEN\HYDROCODONE [Suspect]
     Active Substance: ACETAMINOPHEN\HYDROCODONE
     Dosage: OTHER QUANTITY : 1 TABLET(S);?FREQUENCY : EVERY 4 HOURS;?
     Route: 048
     Dates: start: 20221031, end: 20221104
  2. Plaquenil [Concomitant]
  3. PREDNISONE [Concomitant]
     Active Substance: PREDNISONE
  4. CYMBALTA [Concomitant]
     Active Substance: DULOXETINE HYDROCHLORIDE
  5. Vitamin C [Concomitant]
  6. VITAMIN D [Concomitant]
     Active Substance: VITAMIN D NOS
  7. BIOTIN [Concomitant]
  8. VITAMIN B [Concomitant]
  9. Krill Oil Docusate [Concomitant]
  10. sodium Magnesium [Concomitant]
  11. ZINC [Concomitant]
     Active Substance: ZINC

REACTIONS (6)
  - Heart rate increased [None]
  - Hyperhidrosis [None]
  - Akathisia [None]
  - Tremor [None]
  - Asthenia [None]
  - Tremor [None]

NARRATIVE: CASE EVENT DATE: 20221104
